FAERS Safety Report 6238663-0 (Version None)
Quarter: 2009Q2

REPORT INFORMATION
  Report Type: 
  Country: None (occurrence: None)
  Receive Date: 20090622
  Receipt Date: 20090611
  Transmission Date: 20091009
  Serious: Yes (Other)
  Sender: FDA-Public Use
  Company Number: GB-PFIZER INC-2009225649

PATIENT
  Age: 29 Year

DRUGS (2)
  1. CHAMPIX [Suspect]
     Dosage: UNK
     Route: 048
     Dates: start: 20090514, end: 20090529
  2. ERYTHROMYCIN [Concomitant]
     Dosage: UNK

REACTIONS (4)
  - DEPRESSED MOOD [None]
  - DEPRESSION [None]
  - NEGATIVE THOUGHTS [None]
  - TEARFULNESS [None]
